FAERS Safety Report 7089220-8 (Version None)
Quarter: 2010Q4

REPORT INFORMATION
  Report Type: 
  Country: None (occurrence: None)
  Receive Date: 20101029
  Receipt Date: 20101022
  Transmission Date: 20110411
  Serious: Yes (Hospitalization, Other)
  Sender: FDA-Public Use
  Company Number: 019974

PATIENT
  Sex: Male
  Weight: 110 kg

DRUGS (2)
  1. LACOSAMIDE [Suspect]
     Indication: EPILEPSY
     Dosage: (150 MG BID ORAL)
     Route: 048
     Dates: start: 20091101, end: 20101009
  2. LACOSAMIDE [Suspect]
     Indication: OFF LABEL USE
     Dosage: (150 MG BID ORAL)
     Route: 048
     Dates: start: 20091101, end: 20101009

REACTIONS (11)
  - ATRIAL FIBRILLATION [None]
  - ATRIOVENTRICULAR BLOCK SECOND DEGREE [None]
  - CARDIAC ARREST [None]
  - CHEST PAIN [None]
  - CONDITION AGGRAVATED [None]
  - LOSS OF CONSCIOUSNESS [None]
  - MALAISE [None]
  - MENTAL DISORDER [None]
  - SICK SINUS SYNDROME [None]
  - SYNCOPE [None]
  - TONIC CLONIC MOVEMENTS [None]
